FAERS Safety Report 5943275-X (Version None)
Quarter: 2008Q4

REPORT INFORMATION
  Report Type: 
  Country: None (occurrence: None)
  Receive Date: 20081105
  Receipt Date: 20081105
  Transmission Date: 20090506
  Serious: Yes (Disabling)
  Sender: FDA-Public Use
  Company Number: None

PATIENT
  Age: 26 Year
  Sex: Female

DRUGS (1)
  1. LEVAQUIN [Suspect]
     Indication: URINARY TRACT INFECTION
     Dosage: 750MG ONCE IV DRIP
     Route: 041
     Dates: start: 20081103, end: 20081103

REACTIONS (2)
  - ANAPHYLACTIC REACTION [None]
  - DERMATITIS ALLERGIC [None]
